FAERS Safety Report 23924553 (Version 2)
Quarter: 2024Q3

REPORT INFORMATION
  Report Type: Spontaneous
  Country: US (occurrence: US)
  Receive Date: 20240531
  Receipt Date: 20240710
  Transmission Date: 20241016
  Serious: Yes (Disabling, Other)
  Sender: PFIZER
  Company Number: US-PFIZER INC-PV202400059459

PATIENT
  Age: 38 Year
  Sex: Female

DRUGS (2)
  1. DEPO-PROVERA [Suspect]
     Active Substance: MEDROXYPROGESTERONE ACETATE
     Indication: Contraception
     Dosage: DOSE 1 (2 DOSES 13 WEEKS APART)
     Route: 030
     Dates: start: 20040331, end: 20040331
  2. DEPO-PROVERA [Suspect]
     Active Substance: MEDROXYPROGESTERONE ACETATE
     Dosage: DOSE 2 (2 DOSES 13 WEEKS APART)
     Route: 030
     Dates: start: 200406, end: 200406

REACTIONS (4)
  - Polyarthritis [Not Recovered/Not Resolved]
  - Bone disorder [Not Recovered/Not Resolved]
  - Weight increased [Unknown]
  - Mental disorder [Unknown]
